FAERS Safety Report 6427095-8 (Version None)
Quarter: 2009Q4

REPORT INFORMATION
  Report Type: 
  Country: None (occurrence: None)
  Receive Date: 20091026
  Receipt Date: 20090624
  Transmission Date: 20100525
  Serious: No
  Sender: FDA-Public Use
  Company Number: FPI-09-FIR-0181

PATIENT
  Age: 68 Year
  Sex: Male

DRUGS (5)
  1. FIRMAGON [Suspect]
     Indication: PROSTATE CANCER
     Dosage: 240MG SC (2 X 120MG)
     Route: 058
     Dates: start: 20090619, end: 20090619
  2. ATENOLOL [Concomitant]
  3. LISINOPRIL [Concomitant]
  4. NORVASC [Concomitant]
  5. ASPIRIN [Concomitant]

REACTIONS (3)
  - ERYTHEMA [None]
  - INJECTION SITE SWELLING [None]
  - SWELLING [None]
